FAERS Safety Report 24402292 (Version 2)
Quarter: 2024Q4

REPORT INFORMATION
  Report Type: Report from Study
  Country: US (occurrence: US)
  Receive Date: 20241007
  Receipt Date: 20241114
  Transmission Date: 20250115
  Serious: Yes (Hospitalization, Other)
  Sender: Pyros Pharmaceuticals
  Company Number: US-PYROS PHARMACEUTICALS, INC-2024-PYROS-US000078

PATIENT
  Age: 1 Year
  Sex: Male
  Weight: 9.24 kg

DRUGS (6)
  1. VIGAFYDE [Suspect]
     Active Substance: VIGABATRIN
     Indication: Infantile spasms
     Dosage: 225 MG (2.25 ML), BID
     Dates: start: 20240920, end: 202410
  2. VIGAFYDE [Suspect]
     Active Substance: VIGABATRIN
     Dosage: 550 MG (5.5 ML), DAILY (2.5 ML IN THE MORNING AND 3.0 ML IN THE EVENING)
     Dates: start: 202410
  3. ONFI [Suspect]
     Active Substance: CLOBAZAM
     Indication: Generalised tonic-clonic seizure
     Dosage: 500 MG, TID
     Dates: start: 202307
  4. ONFI [Suspect]
     Active Substance: CLOBAZAM
     Dosage: UNKNOWN DOSE, BID, TWICE DAILY
  5. PHENOBARBITAL [Concomitant]
     Active Substance: PHENOBARBITAL
     Indication: Generalised tonic-clonic seizure
     Dosage: 16.2 MG, BID
     Dates: start: 202305
  6. KEPPRA [Concomitant]
     Active Substance: LEVETIRACETAM
     Indication: Generalised tonic-clonic seizure
     Dosage: 250 MG, BID, PLUS 1.5 TABLETS AS A THIRD DOSE
     Dates: start: 202305

REACTIONS (11)
  - Increased viscosity of upper respiratory secretion [Not Recovered/Not Resolved]
  - Oxygen saturation decreased [Recovered/Resolved]
  - Increased upper airway secretion [Not Recovered/Not Resolved]
  - Urinary retention [Not Recovered/Not Resolved]
  - Potentiating drug interaction [Unknown]
  - Therapeutic product effect incomplete [Recovered/Resolved]
  - Urinary tract infection [Recovered/Resolved]
  - Urinary tract infection [Not Recovered/Not Resolved]
  - Off label use [Unknown]
  - Somnolence [Recovering/Resolving]
  - Sedation [Recovering/Resolving]

NARRATIVE: CASE EVENT DATE: 20240920
